FAERS Safety Report 8140536-3 (Version None)
Quarter: 2012Q1

REPORT INFORMATION
  Report Type: 
  Country: None (occurrence: None)
  Receive Date: 20120216
  Receipt Date: 20120213
  Transmission Date: 20120608
  Serious: Yes (Life-Threatening, Other)
  Sender: FDA-Public Use
  Company Number: ZA-PFIZER INC-2012022395

PATIENT
  Age: 77 Year
  Sex: Female

DRUGS (7)
  1. DIAMICRON [Concomitant]
     Dosage: 160 MG, 2X/DAY
     Route: 048
  2. METFORMIN [Concomitant]
     Dosage: 2 DF, 2X/DAY
     Route: 048
  3. VITAMIN B COMPLEX CAP [Concomitant]
     Dosage: 2 DF, 1X/DAY
     Route: 048
  4. FERROUS FUMARATE [Concomitant]
     Dosage: 2 DF, 2X/DAY
     Route: 048
  5. MULTIVITAMIN [Concomitant]
     Dosage: 2 DF, 1X/DAY
     Route: 048
  6. AROMASIN [Suspect]
     Indication: BREAST CANCER METASTATIC
     Dosage: 25 MG, 1X/DAY
     Route: 048
     Dates: start: 20111107, end: 20111225
  7. AREDIA [Concomitant]
     Indication: METASTASES TO BONE
     Dosage: UNK
     Dates: start: 20060101

REACTIONS (3)
  - RASH ERYTHEMATOUS [None]
  - DERMATITIS [None]
  - RASH MACULO-PAPULAR [None]
